FAERS Safety Report 20708173 (Version 1)
Quarter: 2022Q2

REPORT INFORMATION
  Report Type: Spontaneous
  Country: FR (occurrence: FR)
  Receive Date: 20220414
  Receipt Date: 20220414
  Transmission Date: 20220721
  Serious: Yes (Other)
  Sender: FDA-Public Use
  Company Number: FR-NOVARTISPH-NVSC2022FR083742

PATIENT
  Age: 31 Year
  Sex: Female

DRUGS (1)
  1. AZOPT [Suspect]
     Active Substance: BRINZOLAMIDE
     Indication: Optic nerve disorder
     Dosage: 1 DRP, BID (MORNING AND EVENING) (1 DROP OF SUSPENSION 1%)
     Route: 047
     Dates: start: 202105

REACTIONS (2)
  - Ocular hypertension [Unknown]
  - Product use issue [Unknown]
